FAERS Safety Report 9841414 (Version 1)
Quarter: 2013Q4

REPORT INFORMATION
  Report Type: Spontaneous
  Country: US (occurrence: None)
  Receive Date: 20131219
  Receipt Date: 20131219
  Transmission Date: 20140711
  Serious: Yes (Other)
  Sender: FDA-Public Use
  Company Number: 163-20785-12102270

PATIENT
  Age: 77 Year
  Sex: Male

DRUGS (12)
  1. THALOMID [Suspect]
     Indication: PLASMA CELL MYELOMA
     Dosage: 50 G, 28 IN 28 D, PO
     Route: 048
     Dates: start: 20121001
  2. ASPIRIN(ACETYLSALICYLIC ACID) [Concomitant]
  3. DEXAMETHASONE(DEXAMETHASONE) [Concomitant]
  4. DIOVAN(VALSARTAN) [Concomitant]
  5. FUROSEMIDE(FUROSEMIDE) [Concomitant]
  6. HUMALOG MIX 75/25(INSULIN LISPRO) [Concomitant]
  7. HYDROCHLOROTHIAZIDE(HYDROCHLORTHIAZIDE) [Concomitant]
  8. LANTUS(INSULIN GLARGINE) [Concomitant]
  9. LOPERAMIDE HCL(LOPERAMIDE HYDRCHLORIDE) [Concomitant]
  10. MULTI-DAY PLUS MINERALS(OTHER VITAMIN PRODUCTS, COMBINATIONS) [Concomitant]
  11. METOPROLOL TARTRATE (METOPROLOL TARTRATE) [Concomitant]
  12. ALDACTAZIDE(ALDACTAZIDE A) [Concomitant]

REACTIONS (4)
  - Vision blurred [None]
  - Fall [None]
  - Dizziness [None]
  - Oedema peripheral [None]
